FAERS Safety Report 24096368 (Version 1)
Quarter: 2024Q3

REPORT INFORMATION
  Report Type: Spontaneous
  Country: US (occurrence: US)
  Receive Date: 20240716
  Receipt Date: 20240716
  Transmission Date: 20241016
  Serious: Yes (Other)
  Sender: Unknown Manufacturer
  Company Number: US-KOANAAP-SML-US-2024-00729

PATIENT
  Age: 31 Year
  Sex: Male

DRUGS (6)
  1. IMATINIB [Suspect]
     Active Substance: IMATINIB
     Indication: Mastocytic leukaemia
  2. AVAPRITINIB [Suspect]
     Active Substance: AVAPRITINIB
     Indication: Mastocytic leukaemia
  3. CLADRIBINE [Suspect]
     Active Substance: CLADRIBINE
     Indication: Mastocytic leukaemia
  4. MIDOSTAURIN [Suspect]
     Active Substance: MIDOSTAURIN
     Indication: Mastocytic leukaemia
  5. EPINEPHRINE [Concomitant]
     Active Substance: EPINEPHRINE
     Indication: Mast cell activation syndrome
     Route: 030
  6. EPINEPHRINE [Concomitant]
     Active Substance: EPINEPHRINE
     Route: 041

REACTIONS (3)
  - Therapy non-responder [Unknown]
  - Malignant pleural effusion [Unknown]
  - Malignant ascites [Unknown]
